FAERS Safety Report 16288788 (Version 1)
Quarter: 2019Q2

REPORT INFORMATION
  Report Type: Other
  Country: CA (occurrence: CA)
  Receive Date: 20190509
  Receipt Date: 20190509
  Transmission Date: 20190711
  Serious: Yes (Hospitalization)
  Sender: FDA-Public Use
  Company Number: CA-ASTELLAS-2019US019752

PATIENT
  Age: 61 Year
  Sex: Male
  Weight: 63 kg

DRUGS (1)
  1. SOLIFENACIN [Suspect]
     Active Substance: SOLIFENACIN
     Indication: MICTURITION URGENCY
     Route: 048

REACTIONS (1)
  - Peripheral sensory neuropathy [Recovered/Resolved]
